FAERS Safety Report 16779487 (Version 1)
Quarter: 2019Q3

REPORT INFORMATION
  Report Type: Spontaneous
  Country: US (occurrence: US)
  Receive Date: 20190906
  Receipt Date: 20190906
  Transmission Date: 20191005
  Serious: Yes (Hospitalization, Other)
  Sender: FDA-Public Use
  Company Number: US-SA-2019SA247873

PATIENT
  Age: 57 Year
  Sex: Female

DRUGS (9)
  1. METOPROLOL. [Concomitant]
     Active Substance: METOPROLOL
  2. LEVOTHYROXINE. [Concomitant]
     Active Substance: LEVOTHYROXINE
  3. METHOTREXATE. [Concomitant]
     Active Substance: METHOTREXATE
  4. PRALUENT [Suspect]
     Active Substance: ALIROCUMAB
     Indication: TYPE V HYPERLIPIDAEMIA
  5. FOLIC ACID. [Concomitant]
     Active Substance: FOLIC ACID
  6. PRALUENT [Suspect]
     Active Substance: ALIROCUMAB
     Indication: ARTERIOSCLEROSIS
     Dosage: 150 MG, QOW
  7. TERBINAFINE. [Concomitant]
     Active Substance: TERBINAFINE
  8. PRASUGREL. [Concomitant]
     Active Substance: PRASUGREL
  9. PRAVASTATIN. [Concomitant]
     Active Substance: PRAVASTATIN

REACTIONS (2)
  - Rheumatoid arthritis [Unknown]
  - Stent placement [Unknown]

NARRATIVE: CASE EVENT DATE: 201908
